FAERS Safety Report 7921404-6 (Version None)
Quarter: 2011Q4

REPORT INFORMATION
  Report Type: 
  Country: None (occurrence: None)
  Receive Date: 20111117
  Receipt Date: 20111114
  Transmission Date: 20120403
  Serious: Yes (Other)
  Sender: FDA-Public Use
  Company Number: US-AMGEN-USASP2011003098

PATIENT
  Age: 72 Year
  Sex: Female

DRUGS (4)
  1. NPLATE [Suspect]
     Indication: MEGAKARYOCYTES
  2. NPLATE [Suspect]
     Indication: THROMBOCYTOPENIA
  3. NPLATE [Suspect]
     Indication: EOSINOPHILIA
     Dosage: UNK
     Dates: start: 20090619
  4. NPLATE [Suspect]
     Indication: THROMBOCYTOSIS

REACTIONS (7)
  - CHEST PAIN [None]
  - MENTAL IMPAIRMENT [None]
  - FEELING COLD [None]
  - PLATELET COUNT ABNORMAL [None]
  - PLATELET COUNT DECREASED [None]
  - HAEMATOMA [None]
  - INJECTION SITE PAIN [None]
